FAERS Safety Report 22665372 (Version 3)
Quarter: 2024Q1

REPORT INFORMATION
  Report Type: Report from Study
  Country: CA (occurrence: CA)
  Receive Date: 20230703
  Receipt Date: 20240125
  Transmission Date: 20240410
  Serious: Yes (Other)
  Sender: FDA-Public Use
  Company Number: CA-GLAXOSMITHKLINE-CA2023AMR090488

PATIENT

DRUGS (8)
  1. MEPOLIZUMAB [Suspect]
     Active Substance: MEPOLIZUMAB
     Indication: Asthma
     Dosage: 100 MG, Q4W
     Route: 058
     Dates: start: 20180615
  2. MEPOLIZUMAB [Suspect]
     Active Substance: MEPOLIZUMAB
     Dosage: 100 MG, Q4W
     Route: 058
  3. MEPOLIZUMAB [Suspect]
     Active Substance: MEPOLIZUMAB
     Dosage: 100 MG, Q4W
     Route: 058
  4. FLUVAX [Suspect]
     Active Substance: INFLUENZA VIRUS VACCINE
     Indication: Product used for unknown indication
     Dosage: 0.7 ML
  5. SPIKEVAX (ELASOMERAN) [Suspect]
     Active Substance: ELASOMERAN
     Indication: COVID-19 prophylaxis
     Dosage: 0.5 ML
  6. ALVESCO [Concomitant]
     Active Substance: CICLESONIDE
     Indication: Product used for unknown indication
     Dosage: UNK, QD 16 INHALATIONS
     Dates: start: 20230319, end: 20230329
  7. VENTOLIN [Concomitant]
     Active Substance: ALBUTEROL SULFATE
     Indication: Product used for unknown indication
     Dosage: UNK, 4X AT A.M AND 4X AT PM PRN
  8. PREDNISONE [Concomitant]
     Active Substance: PREDNISONE
     Indication: Product used for unknown indication
     Dosage: UNK UNK, QD 1 TAB FOR 5 DAYS

REACTIONS (19)
  - Chest injury [Unknown]
  - Accident at home [Unknown]
  - Muscle strain [Unknown]
  - Dyspnoea [Recovered/Resolved]
  - Pain [Recovering/Resolving]
  - Headache [Recovered/Resolved]
  - Constipation [Unknown]
  - Arthralgia [Not Recovered/Not Resolved]
  - Poor quality sleep [Not Recovered/Not Resolved]
  - Fatigue [Unknown]
  - Pyrexia [Recovered/Resolved]
  - Vomiting [Unknown]
  - Crepitations [Unknown]
  - Back pain [Unknown]
  - Peripheral swelling [Not Recovered/Not Resolved]
  - Oedema peripheral [Unknown]
  - Erythema [Unknown]
  - Asthma [Unknown]
  - Stress [Unknown]

NARRATIVE: CASE EVENT DATE: 20230801
